FAERS Safety Report 8212757-2 (Version None)
Quarter: 2012Q1

REPORT INFORMATION
  Report Type: 
  Country: None (occurrence: None)
  Receive Date: 20120315
  Receipt Date: 20120302
  Transmission Date: 20120608
  Serious: Yes (Other)
  Sender: FDA-Public Use
  Company Number: ES-CELGENEUS-144-21880-12030299

PATIENT
  Age: 68 Year
  Sex: Male

DRUGS (3)
  1. REVLIMID [Suspect]
     Dosage: 10 MILLIGRAM
     Route: 048
     Dates: start: 20090701, end: 20110301
  2. REVLIMID [Suspect]
     Route: 048
     Dates: start: 20070907, end: 20080101
  3. REVLIMID [Suspect]
     Route: 048
     Dates: start: 20081205, end: 20090601

REACTIONS (3)
  - RECTAL CANCER [None]
  - ACUTE MYELOID LEUKAEMIA [None]
  - MYELODYSPLASTIC SYNDROME TRANSFORMATION [None]
